FAERS Safety Report 17730985 (Version 1)
Quarter: 2020Q2

REPORT INFORMATION
  Report Type: Spontaneous
  Country: US (occurrence: US)
  Receive Date: 20200430
  Receipt Date: 20200430
  Transmission Date: 20200714
  Serious: Yes (Life-Threatening)
  Sender: FDA-Public Use
  Company Number: US-AMERICAN REGENT INC-2020000971

PATIENT
  Age: 3 Day
  Sex: Male
  Weight: 2.65 kg

DRUGS (8)
  1. LORAZEPAM. [Concomitant]
     Active Substance: LORAZEPAM
     Indication: TONIC CLONIC MOVEMENTS
     Dosage: 0.1 MILLIGRAM/KILOGRAM
     Route: 065
  2. LORAZEPAM. [Concomitant]
     Active Substance: LORAZEPAM
     Dosage: 0.1 MILLIGRAM/KILOGRAM
     Route: 065
  3. FOSPHENYTOIN SODIUM INJECTION, USP (025-21) [Suspect]
     Active Substance: FOSPHENYTOIN SODIUM
     Dosage: 2.5 MILLIGRAM/KILOGRAM
     Route: 042
  4. LORAZEPAM. [Concomitant]
     Active Substance: LORAZEPAM
     Dosage: 0.1 MILLIGRAM/KILOGRAM
     Route: 065
  5. FOSPHENYTOIN SODIUM INJECTION, USP (025-21) [Suspect]
     Active Substance: FOSPHENYTOIN SODIUM
     Indication: TONIC CLONIC MOVEMENTS
     Dosage: 20 MILLIGRAM/KILOGRAM
  6. FOSPHENYTOIN SODIUM INJECTION, USP (025-21) [Suspect]
     Active Substance: FOSPHENYTOIN SODIUM
     Dosage: 5 MILLIGRAM/KILOGRAM (MAINTENANCE DOSE)
     Route: 042
  7. FOSPHENYTOIN SODIUM INJECTION, USP (025-21) [Suspect]
     Active Substance: FOSPHENYTOIN SODIUM
     Dosage: 2.5 MILLIGRAM/KILOGRAM
     Route: 042
  8. PHENOBARBITAL. [Concomitant]
     Active Substance: PHENOBARBITAL
     Indication: TONIC CLONIC MOVEMENTS
     Dosage: 20 MILLIGRAM/KILOGRAM
     Route: 065

REACTIONS (3)
  - Toxicity to various agents [Recovered/Resolved]
  - Product use issue [Unknown]
  - Circulatory collapse [Recovered/Resolved]
